FAERS Safety Report 12113406 (Version 1)
Quarter: 2016Q1

REPORT INFORMATION
  Report Type: Spontaneous
  Country: IN (occurrence: IN)
  Receive Date: 20160225
  Receipt Date: 20160225
  Transmission Date: 20160526
  Serious: Yes (Hospitalization)
  Sender: FDA-Public Use
  Company Number: IN-009507513-1602IND010838

PATIENT
  Age: 59 Year
  Sex: Female
  Weight: 76 kg

DRUGS (1)
  1. JANUVIA [Suspect]
     Active Substance: SITAGLIPTIN PHOSPHATE
     Indication: DIABETES MELLITUS
     Dosage: 1 TABLET/DAY
     Route: 048

REACTIONS (2)
  - Urinary tract infection [Not Recovered/Not Resolved]
  - Pyrexia [Not Recovered/Not Resolved]
